FAERS Safety Report 5862382-3 (Version None)
Quarter: 2008Q3

REPORT INFORMATION
  Report Type: 
  Country: None (occurrence: None)
  Receive Date: 20080818
  Receipt Date: 20080625
  Transmission Date: 20090109
  Serious: No
  Sender: FDA-Public Use
  Company Number: WAES 0806USA08647

PATIENT
  Age: 74 Year
  Sex: Male

DRUGS (7)
  1. JANUVIA [Suspect]
     Indication: TYPE 2 DIABETES MELLITUS
     Dosage: 100 MG/DAILY/PO
     Route: 048
     Dates: start: 20071231
  2. CARDURA [Concomitant]
  3. PRINIVIL [Concomitant]
  4. XANAX [Concomitant]
  5. ZOCOR [Concomitant]
  6. ZOLOFT [Concomitant]
  7. GLYBURIDE [Concomitant]

REACTIONS (5)
  - ASTHENIA [None]
  - GASTROINTESTINAL DISORDER [None]
  - HYPERSOMNIA [None]
  - PARANASAL SINUS HYPERSECRETION [None]
  - RESPIRATORY DISORDER [None]
